FAERS Safety Report 7398693-2 (Version None)
Quarter: 2011Q2

REPORT INFORMATION
  Report Type: 
  Country: None (occurrence: None)
  Receive Date: 20110407
  Receipt Date: 20110331
  Transmission Date: 20111010
  Serious: No
  Sender: FDA-Public Use
  Company Number: US-BIOGENIDEC-2011BI012437

PATIENT
  Age: 41 Year
  Sex: Female

DRUGS (1)
  1. TYSABRI [Suspect]
     Indication: MULTIPLE SCLEROSIS
     Route: 042
     Dates: start: 20070924

REACTIONS (9)
  - MUSCLE SPASMS [None]
  - HEADACHE [None]
  - ASTHENIA [None]
  - PAIN [None]
  - FATIGUE [None]
  - NASOPHARYNGITIS [None]
  - BONE PAIN [None]
  - ARTHRALGIA [None]
  - FEELING HOT [None]
